FAERS Safety Report 7649529-3 (Version None)
Quarter: 2011Q3

REPORT INFORMATION
  Report Type: 
  Country: None (occurrence: None)
  Receive Date: 20110802
  Receipt Date: 20110726
  Transmission Date: 20111222
  Serious: Yes (Death, Hospitalization)
  Sender: FDA-Public Use
  Company Number: GB-CELGENEUS-167-AB007-11050848

PATIENT
  Sex: Male
  Weight: 88.5 kg

DRUGS (2)
  1. ABRAXANE [Suspect]
     Indication: METASTATIC MALIGNANT MELANOMA
     Dosage: 325 MILLIGRAM
     Route: 041
     Dates: start: 20110331, end: 20110427
  2. ABRAXANE [Suspect]
     Dosage: 325 MILLIGRAM
     Route: 041
     Dates: start: 20110608, end: 20110615

REACTIONS (5)
  - SYNCOPE [None]
  - EXTRAVASATION [None]
  - CELLULITIS [None]
  - SEPSIS [None]
  - PNEUMONIA [None]
